FAERS Safety Report 9269495 (Version 3)
Quarter: 2013Q2

REPORT INFORMATION
  Report Type: Spontaneous
  Country: US (occurrence: US)
  Receive Date: 20130503
  Receipt Date: 20130624
  Transmission Date: 20140414
  Serious: Yes (Death)
  Sender: FDA-Public Use
  Company Number: US-PFIZER INC-2013136625

PATIENT
  Age: 73 Year
  Sex: Male

DRUGS (6)
  1. XALKORI [Suspect]
     Indication: NEOPLASM MALIGNANT
     Dosage: 250 MG, 2X/DAY
     Route: 048
  2. GABAPENTIN [Concomitant]
     Dosage: 800 MG, UNK
  3. OXYCODONE [Concomitant]
     Dosage: 5 MG, UNK
  4. STOOL SOFTENER [Concomitant]
     Dosage: 240 MG, UNK
  5. MULTIPLE VITAMINS [Concomitant]
  6. VITAMIN D [Concomitant]
     Dosage: 400 UNIT

REACTIONS (2)
  - Disease progression [Fatal]
  - Neoplasm malignant [Fatal]
